FAERS Safety Report 12805876 (Version 1)
Quarter: 2016Q4

REPORT INFORMATION
  Report Type: Spontaneous
  Country: US (occurrence: US)
  Receive Date: 20161004
  Receipt Date: 20161004
  Transmission Date: 20170207
  Serious: No
  Sender: FDA-Public Use
  Company Number: US-PFIZER INC-2016458518

PATIENT
  Sex: Female

DRUGS (2)
  1. CENTRUM SILVER [Suspect]
     Active Substance: MINERALS\VITAMINS
  2. VERAPAMIL HCL [Suspect]
     Active Substance: VERAPAMIL HYDROCHLORIDE
     Indication: BLOOD PRESSURE ABNORMAL
     Dosage: 240 MG, (THREE 80MG TABLETS), UNK

REACTIONS (3)
  - Product difficult to swallow [Unknown]
  - Dysphagia [Unknown]
  - Product size issue [Unknown]
